FAERS Safety Report 17960873 (Version 1)
Quarter: 2020Q2

REPORT INFORMATION
  Report Type: Report from Study
  Country: None (occurrence: US)
  Receive Date: 20200630
  Receipt Date: 20200630
  Transmission Date: 20200714
  Serious: Yes (Other)
  Sender: FDA-Public Use
  Company Number: US-BIOVITRUM-2019US3419

PATIENT
  Sex: Male

DRUGS (1)
  1. KINERET [Suspect]
     Active Substance: ANAKINRA
     Indication: HAEMOPHAGOCYTIC LYMPHOHISTIOCYTOSIS
     Route: 058
     Dates: start: 20190830

REACTIONS (5)
  - Cellulitis [Unknown]
  - Diarrhoea [Unknown]
  - Injection site mass [Unknown]
  - Alcohol use [Unknown]
  - Off label use [Not Recovered/Not Resolved]
